FAERS Safety Report 18469694 (Version 4)
Quarter: 2021Q1

REPORT INFORMATION
  Report Type: Spontaneous
  Country: US (occurrence: US)
  Receive Date: 20201105
  Receipt Date: 20210105
  Transmission Date: 20210419
  Serious: Yes (Hospitalization, Other)
  Sender: FDA-Public Use
  Company Number: US-COHERUS BIOSCIENCES, INC-2020US004484

PATIENT

DRUGS (43)
  1. ETOPOSIDE. [Concomitant]
     Active Substance: ETOPOSIDE
     Dosage: UNK
     Dates: start: 20200218
  2. ETOPOSIDE. [Concomitant]
     Active Substance: ETOPOSIDE
     Dosage: UNK
     Dates: start: 20200312
  3. ETOPOSIDE. [Concomitant]
     Active Substance: ETOPOSIDE
     Dosage: UNK
     Dates: start: 202007
  4. ONCOVIN [Concomitant]
     Active Substance: VINCRISTINE SULFATE
     Dosage: UNK
     Dates: start: 20200218
  5. ONCOVIN [Concomitant]
     Active Substance: VINCRISTINE SULFATE
     Dosage: UNK
     Dates: start: 20200627
  6. CYCLOPHOSPHAMIDE. [Concomitant]
     Active Substance: CYCLOPHOSPHAMIDE
     Dosage: UNK
     Dates: start: 20200312
  7. ETOPOSIDE. [Concomitant]
     Active Substance: ETOPOSIDE
     Dosage: UNK
     Dates: start: 20200520
  8. PREDNISONE. [Concomitant]
     Active Substance: PREDNISONE
     Dosage: UNK
     Dates: start: 20200520
  9. ONCOVIN [Concomitant]
     Active Substance: VINCRISTINE SULFATE
     Dosage: UNK
     Dates: start: 20200408
  10. ONCOVIN [Concomitant]
     Active Substance: VINCRISTINE SULFATE
     Dosage: UNK
     Dates: start: 20200616
  11. ONCOVIN [Concomitant]
     Active Substance: VINCRISTINE SULFATE
     Dosage: UNK
     Dates: start: 20200723
  12. CYCLOPHOSPHAMIDE. [Concomitant]
     Active Substance: CYCLOPHOSPHAMIDE
     Dosage: UNK
     Dates: start: 20200627
  13. DOXORUBICIN HYDROCHLORIDE. [Concomitant]
     Active Substance: DOXORUBICIN HYDROCHLORIDE
     Dosage: UNK
     Dates: start: 20200723
  14. ETOPOSIDE. [Concomitant]
     Active Substance: ETOPOSIDE
     Dosage: UNK
     Dates: start: 20200616
  15. ETOPOSIDE. [Concomitant]
     Active Substance: ETOPOSIDE
     Dosage: UNK
     Dates: start: 20200723
  16. PREDNISONE. [Concomitant]
     Active Substance: PREDNISONE
     Dosage: UNK
     Dates: start: 202007
  17. CYCLOPHOSPHAMIDE. [Concomitant]
     Active Substance: CYCLOPHOSPHAMIDE
     Dosage: UNK
     Dates: start: 20200520
  18. DOXORUBICIN HYDROCHLORIDE. [Concomitant]
     Active Substance: DOXORUBICIN HYDROCHLORIDE
     Dosage: UNK
     Dates: start: 202007
  19. UDENYCA [Suspect]
     Active Substance: PEGFILGRASTIM-CBQV
     Indication: FEBRILE NEUTROPENIA
     Dosage: UNK
     Dates: start: 20200617, end: 20200617
  20. RITUXAN [Concomitant]
     Active Substance: RITUXIMAB
     Dosage: UNK
     Dates: start: 20200611
  21. DOXORUBICIN HYDROCHLORIDE. [Concomitant]
     Active Substance: DOXORUBICIN HYDROCHLORIDE
     Dosage: UNK
     Dates: start: 20200312
  22. DOXORUBICIN HYDROCHLORIDE. [Concomitant]
     Active Substance: DOXORUBICIN HYDROCHLORIDE
     Dosage: UNK
     Dates: start: 20200627
  23. PREDNISONE. [Concomitant]
     Active Substance: PREDNISONE
     Dosage: UNK
     Dates: start: 20200408
  24. PREDNISONE. [Concomitant]
     Active Substance: PREDNISONE
     Dosage: UNK
     Dates: start: 20200627
  25. ONCOVIN [Concomitant]
     Active Substance: VINCRISTINE SULFATE
     Dosage: UNK
     Dates: start: 202007
  26. CYCLOPHOSPHAMIDE. [Concomitant]
     Active Substance: CYCLOPHOSPHAMIDE
     Dosage: UNK
     Dates: start: 20200616
  27. CYCLOPHOSPHAMIDE. [Concomitant]
     Active Substance: CYCLOPHOSPHAMIDE
     Dosage: UNK
     Dates: start: 20200723
  28. DOXORUBICIN HYDROCHLORIDE. [Concomitant]
     Active Substance: DOXORUBICIN HYDROCHLORIDE
     Dosage: UNK
     Dates: start: 20200616
  29. ETOPOSIDE. [Concomitant]
     Active Substance: ETOPOSIDE
     Dosage: UNK
     Dates: start: 20200627
  30. ONCOVIN [Concomitant]
     Active Substance: VINCRISTINE SULFATE
     Dosage: UNK
     Dates: start: 20200312
  31. CYCLOPHOSPHAMIDE. [Concomitant]
     Active Substance: CYCLOPHOSPHAMIDE
     Dosage: UNK
     Dates: start: 20200408
  32. CYCLOPHOSPHAMIDE. [Concomitant]
     Active Substance: CYCLOPHOSPHAMIDE
     Dosage: UNK
     Dates: start: 202007
  33. DOXORUBICIN HYDROCHLORIDE. [Concomitant]
     Active Substance: DOXORUBICIN HYDROCHLORIDE
     Dosage: UNK
     Dates: start: 20200218
  34. DOXORUBICIN HYDROCHLORIDE. [Concomitant]
     Active Substance: DOXORUBICIN HYDROCHLORIDE
     Dosage: UNK
     Dates: start: 20200408
  35. PREDNISONE. [Concomitant]
     Active Substance: PREDNISONE
     Dosage: UNK
     Dates: start: 20200218
  36. PREDNISONE. [Concomitant]
     Active Substance: PREDNISONE
     Dosage: UNK
     Dates: start: 20200312
  37. PREDNISONE. [Concomitant]
     Active Substance: PREDNISONE
     Dosage: UNK
     Dates: start: 20200723
  38. CYCLOPHOSPHAMIDE. [Concomitant]
     Active Substance: CYCLOPHOSPHAMIDE
     Dosage: UNK
     Dates: start: 20200218
  39. DOXORUBICIN HYDROCHLORIDE. [Concomitant]
     Active Substance: DOXORUBICIN HYDROCHLORIDE
     Dosage: UNK
     Dates: start: 20200520
  40. UDENYCA [Suspect]
     Active Substance: PEGFILGRASTIM-CBQV
     Dosage: UNK
     Dates: start: 20200724, end: 20200724
  41. ETOPOSIDE. [Concomitant]
     Active Substance: ETOPOSIDE
     Dosage: UNK
     Dates: start: 20200408
  42. PREDNISONE. [Concomitant]
     Active Substance: PREDNISONE
     Dosage: UNK
     Dates: start: 20200616
  43. ONCOVIN [Concomitant]
     Active Substance: VINCRISTINE SULFATE
     Dosage: UNK
     Dates: start: 20200520

REACTIONS (7)
  - Platelet count abnormal [Unknown]
  - Dyspnoea [Recovered/Resolved]
  - Respiratory failure [Unknown]
  - Cachexia [Unknown]
  - Asthenia [Unknown]
  - Fatigue [Recovered/Resolved]
  - Pulmonary alveolar haemorrhage [Recovered/Resolved]

NARRATIVE: CASE EVENT DATE: 20200627
